FAERS Safety Report 4385028-2 (Version None)
Quarter: 2004Q2

REPORT INFORMATION
  Report Type: 
  Country: None (occurrence: None)
  Receive Date: 20040625
  Receipt Date: 20030320
  Transmission Date: 20050107
  Serious: Yes (Hospitalization)
  Sender: FDA-Public Use
  Company Number: FR-GLAXOSMITHKLINE-B0295621A

PATIENT
  Age: 11 Year
  Sex: Female
  Weight: 20 kg

DRUGS (4)
  1. ZOPHREN [Suspect]
     Route: 042
     Dates: start: 20030201, end: 20030205
  2. VALACYCLOVIR HCL [Suspect]
     Dosage: 4UNIT PER DAY
     Route: 048
     Dates: start: 20030202, end: 20030204
  3. SOLU-MEDROL [Suspect]
     Dosage: 20MG PER DAY
     Route: 065
     Dates: start: 20030201, end: 20030205
  4. METHOTREXATE [Suspect]
     Route: 042
     Dates: start: 20020628, end: 20030201

REACTIONS (7)
  - COGNITIVE DISORDER [None]
  - CONFUSIONAL STATE [None]
  - DEMYELINATION [None]
  - DISORIENTATION [None]
  - MICTURITION DISORDER [None]
  - NAUSEA [None]
  - VOMITING [None]
